FAERS Safety Report 17256348 (Version 3)
Quarter: 2022Q2

REPORT INFORMATION
  Report Type: Spontaneous
  Country: AU (occurrence: AU)
  Receive Date: 20200110
  Receipt Date: 20220408
  Transmission Date: 20220721
  Serious: Yes (Other)
  Sender: FDA-Public Use
  Company Number: AU-SUN PHARMACEUTICAL INDUSTRIES LTD-2019R1-232595

PATIENT
  Age: 23 Month
  Sex: Male
  Weight: 12 kg

DRUGS (7)
  1. DEXMEDETOMIDINE [Suspect]
     Active Substance: DEXMEDETOMIDINE
     Indication: General anaesthesia
     Dosage: .2 MICROGRAM/KILOGRAM/MIN
     Route: 042
  2. DEXMEDETOMIDINE [Suspect]
     Active Substance: DEXMEDETOMIDINE
     Dosage: 0.1 MICROGRAM/KILOGRAM/MIN
     Route: 042
  3. SEVOFLURANE [Concomitant]
     Active Substance: SEVOFLURANE
     Indication: General anaesthesia
     Dosage: UNK
     Route: 065
  4. ATRACURIUM [Concomitant]
     Active Substance: ATRACURIUM
     Indication: General anaesthesia
     Dosage: 6 MILLIGRAM
     Route: 065
  5. REMIFENTANIL [Concomitant]
     Active Substance: REMIFENTANIL
     Indication: General anaesthesia
     Dosage: 10 MICROGRAM
     Route: 065
  6. DEXAMETHASONE [Concomitant]
     Active Substance: DEXAMETHASONE
     Indication: General anaesthesia
     Dosage: 8 MILLIGRAM
     Route: 065
  7. REMIFENTANIL [Concomitant]
     Active Substance: REMIFENTANIL
     Indication: General anaesthesia
     Dosage: .2 MICROGRAM/KILOGRAM/MIN
     Route: 065

REACTIONS (3)
  - Overdose [Unknown]
  - Bradycardia [Unknown]
  - Hypotension [Unknown]
